FAERS Safety Report 6026468-5 (Version None)
Quarter: 2009Q1

REPORT INFORMATION
  Report Type: 
  Country: None (occurrence: None)
  Receive Date: 20090102
  Receipt Date: 20081222
  Transmission Date: 20090719
  Serious: Yes (Other)
  Sender: FDA-Public Use
  Company Number: US-PFIZER INC-2008159693

PATIENT
  Sex: Female
  Weight: 70.748 kg

DRUGS (2)
  1. FLAGYL [Suspect]
     Indication: CLOSTRIDIAL INFECTION
     Dosage: 500 MG, 3X/DAY
     Dates: start: 20081114, end: 20081101
  2. VANCOMYCIN HCL [Concomitant]

REACTIONS (1)
  - RECTAL HAEMORRHAGE [None]
